FAERS Safety Report 6929963-7 (Version None)
Quarter: 2010Q3

REPORT INFORMATION
  Report Type: 
  Country: None (occurrence: None)
  Receive Date: 20100818
  Receipt Date: 20100810
  Transmission Date: 20110219
  Serious: Yes (Hospitalization, Other)
  Sender: FDA-Public Use
  Company Number: US-AMGEN-QUU430664

PATIENT
  Sex: Male
  Weight: 31.2 kg

DRUGS (4)
  1. NPLATE [Suspect]
     Indication: IDIOPATHIC THROMBOCYTOPENIC PURPURA
     Route: 058
     Dates: start: 20100215
  2. ACETAMINOPHEN [Concomitant]
     Route: 048
     Dates: start: 20100801
  3. NU-IRON [Concomitant]
  4. CORTICOSTEROIDS [Concomitant]
     Dates: start: 20090106, end: 20090715

REACTIONS (4)
  - MUCOSAL HAEMORRHAGE [None]
  - MUSCULOSKELETAL DISORDER [None]
  - PETECHIAE [None]
  - PURPURA [None]
